FAERS Safety Report 15488096 (Version 1)
Quarter: 2018Q4

REPORT INFORMATION
  Report Type: Spontaneous
  Country: TR (occurrence: TR)
  Receive Date: 20181011
  Receipt Date: 20181011
  Transmission Date: 20190205
  Serious: Yes (Life-Threatening, Hospitalization)
  Sender: FDA-Public Use
  Company Number: TR-MYLANLABS-2018M1074786

PATIENT
  Age: 68 Year
  Sex: Female

DRUGS (8)
  1. METHYLPREDNISOLONE. [Suspect]
     Active Substance: METHYLPREDNISOLONE
     Indication: ANAPHYLACTIC SHOCK
     Route: 042
  2. NORMAL SALINE [Concomitant]
     Active Substance: SODIUM CHLORIDE
     Indication: PRODUCT USED FOR UNKNOWN INDICATION
     Dosage: 0.1 ML OF 1:1000 DILUTION OVER 5 MINUTES
     Route: 041
  3. PHENIRAMINE MALEATE [Suspect]
     Active Substance: PHENIRAMINE MALEATE
     Indication: ANAPHYLACTIC SHOCK
     Route: 042
  4. ETODOLAC. [Suspect]
     Active Substance: ETODOLAC
     Indication: BACK PAIN
     Route: 048
  5. EPINEPHRINE. [Suspect]
     Active Substance: EPINEPHRINE
     Indication: ANAPHYLACTIC SHOCK
     Dosage: 0.1 ML OF 1:1000 DILUTION; DILUTED WITH SODIUM CHLORIDE. THE INFUSION STARTED AT 1 MICROGRAM/MIN ...
     Route: 041
  6. TENOXICAM [Suspect]
     Active Substance: TENOXICAM
     Indication: BACK PAIN
     Route: 030
  7. RANITIDINE. [Suspect]
     Active Substance: RANITIDINE
     Indication: ANAPHYLACTIC SHOCK
     Route: 042
  8. MELOXICAM. [Suspect]
     Active Substance: MELOXICAM
     Indication: BACK PAIN
     Route: 048

REACTIONS (4)
  - Acute respiratory distress syndrome [Unknown]
  - Anaphylactic shock [Unknown]
  - Drug ineffective [Unknown]
  - Non-cardiogenic pulmonary oedema [Unknown]
